FAERS Safety Report 10433415 (Version 1)
Quarter: 2014Q3

REPORT INFORMATION
  Report Type: Spontaneous
  Country: SI (occurrence: SI)
  Receive Date: 20140905
  Receipt Date: 20140905
  Transmission Date: 20150326
  Serious: Yes (Life-Threatening, Hospitalization, Disabling, Other)
  Sender: FDA-Public Use
  Company Number: SI-JNJFOC-20140903007

PATIENT
  Age: 84 Year
  Sex: Female

DRUGS (7)
  1. ARICEPT [Concomitant]
     Active Substance: DONEPEZIL HYDROCHLORIDE
     Route: 065
  2. PANTOPRAZOLE [Concomitant]
     Active Substance: PANTOPRAZOLE SODIUM
     Route: 065
  3. XARELTO [Suspect]
     Active Substance: RIVAROXABAN
     Indication: EMBOLISM VENOUS
     Route: 048
     Dates: start: 201406, end: 201408
  4. XARELTO [Suspect]
     Active Substance: RIVAROXABAN
     Indication: DEEP VEIN THROMBOSIS
     Route: 048
     Dates: start: 201406, end: 201408
  5. NOOTROPIL [Concomitant]
     Active Substance: PIRACETAM
     Route: 065
  6. SINVACOR [Concomitant]
     Active Substance: SIMVASTATIN
     Route: 065
  7. PRITOR [Concomitant]
     Active Substance: TELMISARTAN
     Route: 065

REACTIONS (3)
  - Haemorrhagic transformation stroke [Unknown]
  - Subclavian artery stenosis [Unknown]
  - Ischaemic stroke [Unknown]

NARRATIVE: CASE EVENT DATE: 20140825
